FAERS Safety Report 12215456 (Version 2)
Quarter: 2016Q2

REPORT INFORMATION
  Report Type: Spontaneous
  Country: US (occurrence: US)
  Receive Date: 20160328
  Receipt Date: 20160405
  Transmission Date: 20160815
  Serious: Yes (Other)
  Sender: FDA-Public Use
  Company Number: US-TEVA-645866USA

PATIENT
  Age: 49 Year
  Sex: Female

DRUGS (1)
  1. ZECUITY [Suspect]
     Active Substance: SUMATRIPTAN SUCCINATE
     Indication: MIGRAINE
     Route: 062
     Dates: start: 20160316, end: 20160316

REACTIONS (7)
  - Application site erythema [Not Recovered/Not Resolved]
  - Application site urticaria [Unknown]
  - Application site oedema [Not Recovered/Not Resolved]
  - Application site burn [Not Recovered/Not Resolved]
  - Fatigue [Recovered/Resolved]
  - Dry skin [Not Recovered/Not Resolved]
  - Application site pain [Unknown]

NARRATIVE: CASE EVENT DATE: 201603
